FAERS Safety Report 8480091-1 (Version None)
Quarter: 2012Q2

REPORT INFORMATION
  Report Type: 
  Country: None (occurrence: None)
  Receive Date: 20120629
  Receipt Date: 20120619
  Transmission Date: 20120825
  Serious: Yes (Other)
  Sender: FDA-Public Use
  Company Number: US-ELI_LILLY_AND_COMPANY-US201204009080

PATIENT
  Age: 58 Year
  Sex: Female
  Weight: 95.238 kg

DRUGS (1)
  1. CYMBALTA [Suspect]
     Indication: FIBROMYALGIA
     Dosage: 60 MG, EACH EVENING
     Route: 048
     Dates: start: 20090901, end: 20120401

REACTIONS (5)
  - MUSCULOSKELETAL STIFFNESS [None]
  - STOMATITIS [None]
  - ORAL MUCOSAL EXFOLIATION [None]
  - HEADACHE [None]
  - OFF LABEL USE [None]
